FAERS Safety Report 8530259-0 (Version None)
Quarter: 2012Q3

REPORT INFORMATION
  Report Type: 
  Country: None (occurrence: None)
  Receive Date: 20120723
  Receipt Date: 20120712
  Transmission Date: 20120928
  Serious: Yes (Hospitalization, Disabling, Other)
  Sender: FDA-Public Use
  Company Number: NO-JNJFOC-20120600572

PATIENT
  Sex: Male

DRUGS (12)
  1. LOPERAMIDE [Concomitant]
     Route: 065
  2. REMICADE [Suspect]
     Route: 042
     Dates: start: 20080101
  3. ZOCOR [Suspect]
     Indication: PRODUCT USED FOR UNKNOWN INDICATION
     Route: 065
     Dates: start: 20110601
  4. ACETAMINOPHEN [Concomitant]
     Route: 065
  5. METOPROLOL SUCCINATE [Concomitant]
     Route: 065
  6. FUROSEMIDE [Concomitant]
     Route: 065
  7. PARALGIN FORTE [Concomitant]
     Route: 065
  8. REMICADE [Suspect]
     Indication: ANKYLOSING SPONDYLITIS
     Route: 042
     Dates: start: 20110608, end: 20110601
  9. PENTASA [Concomitant]
     Route: 065
  10. ATACAND [Concomitant]
     Route: 065
  11. ALL OTHER MEDICATIONS [Concomitant]
     Route: 065
  12. ASPIRIN [Concomitant]
     Route: 065

REACTIONS (7)
  - AORTIC VALVE INCOMPETENCE [None]
  - CORONARY ARTERY STENOSIS [None]
  - INTESTINAL STENOSIS [None]
  - SUBILEUS [None]
  - CARDIAC FAILURE [None]
  - DILATATION VENTRICULAR [None]
  - ATRIAL FIBRILLATION [None]
